FAERS Safety Report 10908354 (Version 1)
Quarter: 2015Q1

REPORT INFORMATION
  Report Type: Spontaneous
  Country: US (occurrence: US)
  Receive Date: 20150312
  Receipt Date: 20150312
  Transmission Date: 20150721
  Serious: No
  Sender: FDA-Public Use
  Company Number: US-SA-2014SA160601

PATIENT
  Sex: Male

DRUGS (1)
  1. ELITEK [Suspect]
     Active Substance: RASBURICASE
     Indication: LYMPHOMA
     Dosage: STRENGTH- 7.5MG/5ML
     Route: 065
     Dates: start: 201410

REACTIONS (1)
  - Drug ineffective [Unknown]
